FAERS Safety Report 9880665 (Version 1)
Quarter: 2014Q1

REPORT INFORMATION
  Report Type: Spontaneous
  Country: US (occurrence: None)
  Receive Date: 20140206
  Receipt Date: 20140206
  Transmission Date: 20141002
  Serious: Yes (Other)
  Sender: FDA-Public Use
  Company Number: None

PATIENT
  Age: 46 Year
  Sex: Male
  Weight: 81 kg

DRUGS (5)
  1. IOPAMIDOL [Suspect]
     Indication: COMPUTERISED TOMOGRAM
     Route: 042
     Dates: start: 20131216
  2. OXYCODONE [Concomitant]
  3. PYRIDOXINE HCL [Concomitant]
  4. PREDNISONE [Concomitant]
  5. DIPHENHYDRAMINE [Concomitant]

REACTIONS (1)
  - Hypersensitivity [None]
